FAERS Safety Report 7460876-0 (Version None)
Quarter: 2011Q2

REPORT INFORMATION
  Report Type: 
  Country: None (occurrence: None)
  Receive Date: 20110505
  Receipt Date: 20110503
  Transmission Date: 20111010
  Serious: Yes (Hospitalization)
  Sender: FDA-Public Use
  Company Number: DE-TEVA-274599GER

PATIENT
  Age: 89 Year
  Sex: Female
  Weight: 50 kg

DRUGS (11)
  1. MOXONIDINE 0,3MG [Suspect]
     Indication: HYPERTENSION
     Dosage: .3 MILLIGRAM;
     Route: 048
  2. AMLODIPINE [Concomitant]
     Indication: HYPERTENSION
     Dosage: 10 MILLIGRAM;
     Route: 048
  3. METAMIZOL [Concomitant]
     Indication: PAIN
     Dosage: 2250 MILLIGRAM;
     Route: 048
  4. BISOPROLOL 5MG [Suspect]
     Indication: HYPERTENSION
     Dosage: 5 MILLIGRAM;
     Route: 048
  5. MICTONORM 15MG [Suspect]
     Indication: INCONTINENCE
     Dosage: 30 MILLIGRAM;
     Route: 048
  6. MIRTAZAPIN 15MG [Concomitant]
     Indication: DEPRESSION
     Dosage: 7.5 MILLIGRAM;
     Route: 048
  7. ACETYLSALICYLIC ACID SRT [Concomitant]
     Indication: ISCHAEMIC HEART DISEASE PROPHYLAXIS
     Dosage: 100 MILLIGRAM;
     Route: 048
  8. OXYCODONE 20MG [Suspect]
     Indication: PAIN
     Dosage: 40 MILLIGRAM;
     Route: 048
     Dates: start: 19990101, end: 20110120
  9. DEKRISTOL 20000 I.E. [Concomitant]
     Indication: OSTEOPOROSIS
     Dosage: 1333.3333 IU (INTERNATIONAL UNIT);
     Route: 048
  10. MACROGOL [Concomitant]
     Indication: CONSTIPATION
     Dosage: 13.125 GRAM;
     Route: 048
  11. QUINAPRIL [Suspect]
     Indication: HYPERTENSION
     Dosage: 20 MILLIGRAM;
     Route: 048

REACTIONS (2)
  - FAECALOMA [None]
  - SUBILEUS [None]
